FAERS Safety Report 7457490-X (Version None)
Quarter: 2011Q1

REPORT INFORMATION
  Report Type: 
  Country: None (occurrence: None)
  Receive Date: 20110302
  Receipt Date: 20101014
  Transmission Date: 20110831
  Serious: Yes (Death, Other)
  Sender: FDA-Public Use
  Company Number: 163-21880-10011459

PATIENT
  Age: 58 Year
  Sex: Male

DRUGS (14)
  1. REVLIMID [Suspect]
     Indication: MULTIPLE MYELOMA
     Dosage: SEE IMAGE PO
     Route: 048
     Dates: start: 20080601, end: 20080801
  2. REVLIMID [Suspect]
     Indication: MULTIPLE MYELOMA
     Dosage: SEE IMAGE PO
     Route: 048
     Dates: start: 20080801
  3. REVLIMID [Suspect]
     Indication: MULTIPLE MYELOMA
     Dosage: SEE IMAGE PO
     Route: 048
     Dates: start: 20080201, end: 20080301
  4. REVLIMID [Suspect]
     Indication: MULTIPLE MYELOMA
     Dosage: SEE IMAGE PO
     Route: 048
     Dates: start: 20091201
  5. REVLIMID [Suspect]
     Indication: MULTIPLE MYELOMA
     Dosage: SEE IMAGE PO
     Route: 048
     Dates: start: 20070701
  6. REVLIMID [Suspect]
     Indication: MULTIPLE MYELOMA
     Dosage: SEE IMAGE PO
     Route: 048
     Dates: start: 20081101
  7. FORTAZ [Concomitant]
  8. ATIVAN [Concomitant]
  9. DILAUDID [Concomitant]
  10. ZOLINZA (VORINOSTAT) [Concomitant]
  11. VANCOMYCIN [Concomitant]
  12. ZOFRAN [Concomitant]
  13. LASIX [Concomitant]
  14. DECADRON [Concomitant]

REACTIONS (5)
  - PNEUMONIA [None]
  - SEPSIS [None]
  - CELLULITIS [None]
  - MULTIPLE MYELOMA [None]
  - NEUTROPENIA [None]
